FAERS Safety Report 13738704 (Version 1)
Quarter: 2017Q3

REPORT INFORMATION
  Report Type: Spontaneous
  Country: US (occurrence: US)
  Receive Date: 20170710
  Receipt Date: 20170710
  Transmission Date: 20171127
  Serious: No
  Sender: FDA-Public Use
  Company Number: US-SAOL THERAPEUTICS-2017SAO00342

PATIENT
  Age: 67 Year
  Sex: Male

DRUGS (5)
  1. BACLOFEN. [Suspect]
     Active Substance: BACLOFEN
     Indication: PAIN
     Route: 037
  2. FENTANYL. [Suspect]
     Active Substance: FENTANYL
     Route: 037
  3. BACLOFEN. [Suspect]
     Active Substance: BACLOFEN
     Indication: POST LAMINECTOMY SYNDROME
  4. HYDROMORPHONE [Suspect]
     Active Substance: HYDROMORPHONE
     Route: 037
  5. MORPHINE [Suspect]
     Active Substance: MORPHINE
     Route: 037

REACTIONS (3)
  - Rash [Not Recovered/Not Resolved]
  - Off label use [Unknown]
  - Pruritus [Not Recovered/Not Resolved]

NARRATIVE: CASE EVENT DATE: 201509
